FAERS Safety Report 5892181-8 (Version None)
Quarter: 2008Q3

REPORT INFORMATION
  Report Type: 
  Country: None (occurrence: None)
  Receive Date: 20080918
  Receipt Date: 20080912
  Transmission Date: 20090109
  Serious: Yes (Hospitalization)
  Sender: FDA-Public Use
  Company Number: 2008SP013938

PATIENT
  Age: 69 Year
  Sex: Male
  Weight: 70 kg

DRUGS (20)
  1. TEMODAL [Suspect]
     Indication: LYMPHOMA
     Dosage: 150 MG; QD; PO
     Route: 048
     Dates: start: 20080624, end: 20080628
  2. METHOTREXATE [Suspect]
     Indication: LYMPHOMA
     Dosage: 3.5 GM; QD; IV
     Route: 042
     Dates: start: 20080624, end: 20080624
  3. METHOTREXATE [Suspect]
     Indication: LYMPHOMA
     Dosage: 3.5 GM; QD; IV
     Route: 042
     Dates: start: 20080716, end: 20080716
  4. TAHOR [Concomitant]
  5. KARDEGIC [Concomitant]
  6. COVERSYL [Concomitant]
  7. PLAVIX [Concomitant]
  8. CORTANCYL [Concomitant]
  9. NEXIUM [Concomitant]
  10. TENORMIN [Concomitant]
  11. SOLU-MEDROL [Concomitant]
  12. .................................. [Concomitant]
  13. ZOPHREN [Concomitant]
  14. LASIX [Concomitant]
  15. .................................. [Concomitant]
  16. LEDERFOLIN [Concomitant]
  17. LEDERFOLINE [Concomitant]
  18. PLITICAN [Concomitant]
  19. CHIBRO CADRON [Concomitant]
  20. XALACOM /01575601/ [Concomitant]

REACTIONS (1)
  - RENAL FAILURE [None]
